APPROVED DRUG PRODUCT: CARBAMAZEPINE
Active Ingredient: CARBAMAZEPINE
Strength: 400MG
Dosage Form/Route: TABLET, EXTENDED RELEASE;ORAL
Application: A216235 | Product #003 | TE Code: AB
Applicant: SCIECURE PHARMA INC
Approved: Mar 2, 2023 | RLD: No | RS: No | Type: RX